FAERS Safety Report 18941348 (Version 2)
Quarter: 2021Q1

REPORT INFORMATION
  Report Type: Spontaneous
  Country: US (occurrence: US)
  Receive Date: 20210225
  Receipt Date: 20210331
  Transmission Date: 20210420
  Serious: Yes (Hospitalization)
  Sender: FDA-Public Use
  Company Number: US-FRESENIUS KABI-FK202101749

PATIENT
  Age: 59 Year
  Sex: Female
  Weight: 89.1 kg

DRUGS (5)
  1. IRINOTECAN [Suspect]
     Active Substance: IRINOTECAN
     Indication: PANCREATIC CARCINOMA
     Dosage: IRINOTECAN LIPOSOME?DAYS 1, 15 OF 28 DAY CYCLE?LAST ADMINISTERED: 18/NOV/2020
     Route: 042
     Dates: start: 20200709
  2. FLUOROURACIL (MANUFACTURER UNKNOWN) [Suspect]
     Active Substance: FLUOROURACIL
     Indication: PANCREATIC CARCINOMA
     Dosage: 5 FU?DAYS 1, 15 OF 28 DAY CYCLE?LAST ADMINISTERED: 18/NOV/2020
     Route: 042
     Dates: start: 20200709
  3. FOLINIC ACID [Suspect]
     Active Substance: LEUCOVORIN
     Indication: PANCREATIC CARCINOMA
     Dosage: DAYS 1, 15 OF 28 DAY CYCLE?LAST ADMINISTERED: 18/NOV/2020
     Route: 042
     Dates: start: 20200709
  4. PACLITAXEL ALBUMIN [Suspect]
     Active Substance: PACLITAXEL
     Indication: PANCREATIC CARCINOMA
     Dosage: LAST ADMINISTERED: 13/JAN/2021
     Route: 042
     Dates: start: 20200709
  5. GEMCITABINE. [Suspect]
     Active Substance: GEMCITABINE
     Indication: PANCREATIC CARCINOMA
     Dosage: LAST ADMINISTERED: 13/JAN/2021
     Route: 042
     Dates: start: 20200709

REACTIONS (1)
  - Arthritis bacterial [Not Recovered/Not Resolved]

NARRATIVE: CASE EVENT DATE: 20210124
